FAERS Safety Report 16774422 (Version 1)
Quarter: 2019Q3

REPORT INFORMATION
  Report Type: Spontaneous
  Country: GB (occurrence: GB)
  Receive Date: 20190905
  Receipt Date: 20190905
  Transmission Date: 20191005
  Serious: Yes (Other)
  Sender: FDA-Public Use
  Company Number: GB-TEVA-2019-GB-1101276

PATIENT
  Age: 44 Year
  Sex: Male
  Weight: 76.2 kg

DRUGS (3)
  1. LORATADINE. [Suspect]
     Active Substance: LORATADINE
     Indication: SEASONAL ALLERGY
     Dosage: 10 MG
     Route: 048
     Dates: start: 20190707, end: 20190802
  2. AMLODIPINE MESILATE [Concomitant]
     Active Substance: AMLODIPINE MESYLATE
     Route: 065
  3. ACCORD-UK RAMIPRIL [Concomitant]
     Route: 065

REACTIONS (2)
  - Lethargy [Recovered/Resolved]
  - Depressed mood [Recovered/Resolved]

NARRATIVE: CASE EVENT DATE: 20190707
